FAERS Safety Report 7024562-3 (Version None)
Quarter: 2010Q4

REPORT INFORMATION
  Report Type: 
  Country: None (occurrence: None)
  Receive Date: 20101001
  Receipt Date: 20100927
  Transmission Date: 20110411
  Serious: Yes (Other)
  Sender: FDA-Public Use
  Company Number: JP-PFIZER INC-2010117597

PATIENT
  Age: 4 Year
  Sex: Female

DRUGS (4)
  1. ZITHROMAC [Suspect]
     Indication: NASOPHARYNGITIS
     Dosage: 170 MG, 1X/DAY
     Route: 048
     Dates: start: 20100913, end: 20100915
  2. ASVERIN [Suspect]
     Indication: NASOPHARYNGITIS
     Dosage: UNK
     Dates: start: 20100913, end: 20100915
  3. MUCODYNE [Concomitant]
     Indication: NASOPHARYNGITIS
     Dosage: UNK
     Dates: start: 20100913, end: 20100915
  4. CORTRIL [Concomitant]
     Indication: NASOPHARYNGITIS
     Dosage: UNK
     Dates: start: 20100913, end: 20100915

REACTIONS (1)
  - CHROMATURIA [None]
